FAERS Safety Report 9604612 (Version 3)
Quarter: 2014Q2

REPORT INFORMATION
  Report Type: Spontaneous
  Country: US (occurrence: US)
  Receive Date: 20131008
  Receipt Date: 20140501
  Transmission Date: 20141212
  Serious: Yes (Life-Threatening, Hospitalization)
  Sender: FDA-Public Use
  Company Number: US-BAYER-2013-121187

PATIENT
  Age: 24 Year
  Sex: Female
  Weight: 45.35 kg

DRUGS (3)
  1. MIRENA [Suspect]
     Indication: CONTRACEPTION
     Dosage: 20 MCG/24HR, CONT
     Route: 015
     Dates: start: 20090430, end: 20110709
  2. PITOCIN [Concomitant]
  3. METHERGINE [Concomitant]

REACTIONS (9)
  - Uterine perforation [None]
  - Pain [None]
  - Injury [None]
  - Anhedonia [None]
  - General physical health deterioration [None]
  - Anxiety [None]
  - Vomiting [None]
  - Device dislocation [None]
  - Depression [None]
